FAERS Safety Report 7204409-2 (Version None)
Quarter: 2010Q4

REPORT INFORMATION
  Report Type: 
  Country: None (occurrence: None)
  Receive Date: 20101230
  Receipt Date: 20101220
  Transmission Date: 20110411
  Serious: Yes (Hospitalization, Other)
  Sender: FDA-Public Use
  Company Number: GB-ROCHE-749786

PATIENT
  Age: 76 Year
  Sex: Male

DRUGS (5)
  1. CAPECITABINE [Suspect]
     Dosage: DOSE: 25% DOSE REDUCTION
     Route: 048
  2. FLUOROURACIL [Suspect]
     Dosage: DRUG: 5-FU, DISCONTINUED
     Route: 040
  3. FOLINIC ACID [Concomitant]
     Route: 040
  4. VERAPAMIL [Concomitant]
     Indication: SUPRAVENTRICULAR TACHYARRHYTHMIA
  5. AMLODIPINE [Concomitant]
     Indication: SUPRAVENTRICULAR TACHYARRHYTHMIA

REACTIONS (2)
  - CORONARY ARTERY DISEASE [None]
  - FEMORAL NECK FRACTURE [None]
